FAERS Safety Report 9000663 (Version 1)
Quarter: 2013Q1

REPORT INFORMATION
  Report Type: Spontaneous
  Country: US (occurrence: US)
  Receive Date: 20130107
  Receipt Date: 20130107
  Transmission Date: 20140127
  Serious: No
  Sender: FDA-Public Use
  Company Number: US-PFIZER INC-2013005285

PATIENT
  Age: 51 Year
  Sex: Male
  Weight: 92.97 kg

DRUGS (4)
  1. NEURONTIN [Suspect]
     Indication: MULTIPLE SCLEROSIS
     Dosage: 300 MG, 3X/DAY
  2. NEURONTIN [Suspect]
     Indication: PROSTATE CANCER
     Dosage: UNK
     Dates: start: 201212
  3. OXYCONTIN [Concomitant]
     Indication: MULTIPLE SCLEROSIS
     Dosage: 40 MG, 3X/DAY
  4. OXYCONTIN [Concomitant]
     Indication: PROSTATE CANCER

REACTIONS (7)
  - Laboratory test abnormal [Unknown]
  - Euphoric mood [Not Recovered/Not Resolved]
  - Malaise [Not Recovered/Not Resolved]
  - Sedation [Not Recovered/Not Resolved]
  - Somnolence [Not Recovered/Not Resolved]
  - Off label use [Not Recovered/Not Resolved]
  - Drug ineffective for unapproved indication [Unknown]
